FAERS Safety Report 10203427 (Version 1)
Quarter: 2014Q2

REPORT INFORMATION
  Report Type: Spontaneous
  Country: US (occurrence: None)
  Receive Date: 20140523
  Receipt Date: 20140523
  Transmission Date: 20141212
  Serious: Yes (Hospitalization, Other)
  Sender: FDA-Public Use
  Company Number: 2014-US-006160

PATIENT
  Age: 49 Year
  Sex: Female
  Weight: 83.9 kg

DRUGS (2)
  1. XYREM (SODIUM OXYBATE) ORAL SOLUTION, 500MG/ML [Suspect]
     Indication: NARCOLEPSY
     Route: 048
     Dates: start: 201010, end: 2010
  2. XYREM (SODIUM OXYBATE) ORAL SOLUTION, 500MG/ML [Suspect]
     Indication: SOMNOLENCE
     Route: 048
     Dates: start: 201010, end: 2010

REACTIONS (9)
  - Gastric ulcer haemorrhage [None]
  - Chest pain [None]
  - Gastric bypass [None]
  - Overgrowth bacterial [None]
  - Weight decreased [None]
  - Nausea [None]
  - Vomiting [None]
  - Abdominal distension [None]
  - Gastric ulcer [None]
